FAERS Safety Report 7519184-1 (Version None)
Quarter: 2011Q2

REPORT INFORMATION
  Report Type: 
  Country: None (occurrence: None)
  Receive Date: 20110602
  Receipt Date: 20110427
  Transmission Date: 20111010
  Serious: No
  Sender: FDA-Public Use
  Company Number: US-BRISTOL-MYERS SQUIBB COMPANY-15704612

PATIENT
  Age: 48 Year
  Sex: Male

DRUGS (2)
  1. KOMBIGLYZE XR [Suspect]
     Dosage: 1DF:TWO TABLETS OF KOMBIGLYZE XR 2.5/1000 MG
  2. ZESTORETIC [Concomitant]
     Dosage: 1DF:20/12.5 MG

REACTIONS (1)
  - DIARRHOEA [None]
